FAERS Safety Report 12746576 (Version 1)
Quarter: 2016Q3

REPORT INFORMATION
  Report Type: Spontaneous
  Country: US (occurrence: US)
  Receive Date: 20160915
  Receipt Date: 20160915
  Transmission Date: 20161109
  Serious: Yes (Other)
  Sender: FDA-Public Use
  Company Number: None

PATIENT
  Age: 48 Year
  Sex: Female
  Weight: 94.5 kg

DRUGS (5)
  1. MULTI-VITAMIN [Concomitant]
     Active Substance: .ALPHA.-TOCOPHEROL ACETATE, DL-\ASCORBIC ACID\CYANOCOBALAMIN\FLUORIDE ION\FOLIC ACID\NIACIN\PYRIDOXINE\RIBOFLAVIN\THIAMINE\VITAMIN A\VITAMIN D
  2. IRON SUPPLEMENT [Concomitant]
     Active Substance: IRON
  3. LEXAPRO [Concomitant]
     Active Substance: ESCITALOPRAM OXALATE
  4. MEDROXYPROGESTE-RONE [Suspect]
     Active Substance: MEDROXYPROGESTERONE
     Indication: ENDOMETRIAL HYPERPLASIA
     Dosage: 3 TABLETS DAILY ORAL
     Route: 048
     Dates: start: 20160912, end: 20160914
  5. BUPROPION. [Concomitant]
     Active Substance: BUPROPION

REACTIONS (10)
  - Rash erythematous [None]
  - Pruritus [None]
  - Abdominal pain [None]
  - Influenza like illness [None]
  - Nausea [None]
  - Drug hypersensitivity [None]
  - Breast tenderness [None]
  - Pyrexia [None]
  - Asthenia [None]
  - White blood cell count increased [None]

NARRATIVE: CASE EVENT DATE: 20160913
